FAERS Safety Report 25052616 (Version 1)
Quarter: 2025Q1

REPORT INFORMATION
  Report Type: Spontaneous
  Country: US (occurrence: US)
  Receive Date: 20250307
  Receipt Date: 20250307
  Transmission Date: 20250408
  Serious: No
  Sender: HILL DERMACEUTICALS, INC.
  Company Number: US-Hill Dermaceuticals, Inc.-2172517

PATIENT
  Sex: Male

DRUGS (8)
  1. DERMOTIC [Suspect]
     Active Substance: FLUOCINOLONE ACETONIDE
     Indication: Psoriasis
  2. COSENTYX [Suspect]
     Active Substance: SECUKINUMAB
  3. TRIAMCINOLONE ACETONIDE [Suspect]
     Active Substance: TRIAMCINOLONE ACETONIDE
  4. CALCIPOTRIENE [Suspect]
     Active Substance: CALCIPOTRIENE
  5. CYCLOSPORINE [Suspect]
     Active Substance: CYCLOSPORINE
  6. CLOBETASOL PROPIONATE [Suspect]
     Active Substance: CLOBETASOL PROPIONATE
  7. ADALIMUMAB [Suspect]
     Active Substance: ADALIMUMAB
  8. ELIDEL [Suspect]
     Active Substance: PIMECROLIMUS

REACTIONS (2)
  - Product use in unapproved indication [Unknown]
  - Drug ineffective for unapproved indication [Unknown]
